FAERS Safety Report 10431703 (Version 1)
Quarter: 2014Q3

REPORT INFORMATION
  Report Type: Spontaneous
  Country: GB (occurrence: None)
  Receive Date: 20140903
  Receipt Date: 20140903
  Transmission Date: 20150326
  Serious: Yes (Life-Threatening)
  Sender: FDA-Public Use
  Company Number: FK201403428

PATIENT
  Age: 38 Year
  Sex: Female

DRUGS (1)
  1. SODIUM CHLORIDE (MANUFACTURER UNKNOWN) (SODIUM CHLORIDE) (SODIUM CHLORIDE) [Suspect]
     Active Substance: SODIUM CHLORIDE
     Indication: URINE OUTPUT DECREASED

REACTIONS (3)
  - Systolic dysfunction [None]
  - Pulmonary oedema [None]
  - Cardiac arrest [None]
